FAERS Safety Report 20718515 (Version 1)
Quarter: 2022Q2

REPORT INFORMATION
  Report Type: Spontaneous
  Country: HR (occurrence: HR)
  Receive Date: 20220418
  Receipt Date: 20220418
  Transmission Date: 20220721
  Serious: Yes (Death, Hospitalization, Other)
  Sender: FDA-Public Use
  Company Number: None

PATIENT
  Age: 76 Year
  Sex: Female

DRUGS (5)
  1. ENOXAPARIN SODIUM [Suspect]
     Active Substance: ENOXAPARIN SODIUM
     Dosage: 40 MG, QD
     Dates: start: 20210521, end: 20210521
  2. ENOXAPARIN SODIUM [Suspect]
     Active Substance: ENOXAPARIN SODIUM
     Dosage: 60 MG, QD
     Dates: start: 20210522, end: 20210522
  3. TOZINAMERAN [Suspect]
     Active Substance: TOZINAMERAN
     Indication: COVID-19 immunisation
     Dosage: 0.3 ML
     Route: 030
     Dates: start: 20210318, end: 20210318
  4. TOZINAMERAN [Suspect]
     Active Substance: TOZINAMERAN
     Dosage: UNK
     Route: 030
  5. BISOPROLOL FUMARATE [Concomitant]
     Active Substance: BISOPROLOL FUMARATE
     Indication: Hypertension
     Route: 048

REACTIONS (15)
  - Cardiomyopathy [Fatal]
  - Rhabdomyolysis [Fatal]
  - Quadriplegia [Not Recovered/Not Resolved]
  - Respiratory failure [Fatal]
  - Iron deficiency anaemia [Fatal]
  - Acute kidney injury [Fatal]
  - Acute polyneuropathy [Not Recovered/Not Resolved]
  - Heparin-induced thrombocytopenia [Fatal]
  - Guillain-Barre syndrome [Not Recovered/Not Resolved]
  - Multiple organ dysfunction syndrome [Fatal]
  - Disseminated intravascular coagulation [Fatal]
  - Cardiovascular insufficiency [Fatal]
  - Sepsis [Fatal]
  - Thrombocytopenia [Fatal]
  - Pulmonary embolism [Fatal]

NARRATIVE: CASE EVENT DATE: 20210501
